FAERS Safety Report 4822032-1 (Version None)
Quarter: 2005Q4

REPORT INFORMATION
  Report Type: 
  Country: None (occurrence: None)
  Receive Date: 20051107
  Receipt Date: 20051102
  Transmission Date: 20060501
  Serious: Yes (Hospitalization)
  Sender: FDA-Public Use
  Company Number: JP-JNJFOC-20050701219

PATIENT
  Sex: Female
  Weight: 45 kg

DRUGS (3)
  1. CRAVIT [Suspect]
     Indication: ENTERITIS INFECTIOUS
     Route: 048
     Dates: start: 20050625, end: 20050629
  2. OMNIPAQUE 140 [Suspect]
     Route: 042
     Dates: start: 20050625, end: 20050625
  3. OMNIPAQUE 140 [Suspect]
     Route: 042
     Dates: start: 20050625, end: 20050625

REACTIONS (5)
  - BLOOD BILIRUBIN INCREASED [None]
  - BLOOD LACTATE DEHYDROGENASE INCREASED [None]
  - HAEMOLYTIC ANAEMIA [None]
  - RENAL DISORDER [None]
  - THROMBOTIC THROMBOCYTOPENIC PURPURA [None]
